FAERS Safety Report 5588179-X (Version None)
Quarter: 2008Q1

REPORT INFORMATION
  Report Type: 
  Country: None (occurrence: None)
  Receive Date: 20080108
  Receipt Date: 20071224
  Transmission Date: 20080703
  Serious: Yes (Disabling)
  Sender: FDA-Public Use
  Company Number: 2007002555

PATIENT
  Age: 37 Year
  Sex: Male

DRUGS (4)
  1. ERLOTINIB                                                        (ERLO [Suspect]
     Indication: NON-SMALL CELL LUNG CANCER
     Dosage: 150 MG, QD, ORAL
     Route: 048
     Dates: start: 20071101
  2. PARACETAMOL [Concomitant]
  3. DOXYCYCLINE [Concomitant]
  4. DEXAMETHASONE TAB [Concomitant]

REACTIONS (1)
  - DYSPHAGIA [None]
